FAERS Safety Report 8589420-1 (Version None)
Quarter: 2012Q3

REPORT INFORMATION
  Report Type: 
  Country: None (occurrence: None)
  Receive Date: 20120813
  Receipt Date: 20120803
  Transmission Date: 20120928
  Serious: Yes (Other)
  Sender: FDA-Public Use
  Company Number: GB-ASTRAZENECA-2012SE55009

PATIENT
  Age: 42 Year
  Sex: Female

DRUGS (4)
  1. NORINYL 1+35 28-DAY [Concomitant]
  2. VIMOVO [Suspect]
     Indication: PAIN
     Route: 048
     Dates: start: 20120613, end: 20120723
  3. GABAPENTIN [Concomitant]
  4. TRAMADOL HCL [Concomitant]

REACTIONS (2)
  - MATERNAL EXPOSURE DURING PREGNANCY [None]
  - AMENORRHOEA [None]
